FAERS Safety Report 11547041 (Version 4)
Quarter: 2015Q4

REPORT INFORMATION
  Report Type: Report from Study
  Country: IE (occurrence: IE)
  Receive Date: 20150924
  Receipt Date: 20151030
  Transmission Date: 20160304
  Serious: Yes (Hospitalization)
  Sender: FDA-Public Use
  Company Number: IE-ABBVIE-15P-229-1465616-00

PATIENT
  Age: 50 Year
  Sex: Male
  Weight: 87.3 kg

DRUGS (9)
  1. RIBAVIRIN. [Suspect]
     Active Substance: RIBAVIRIN
     Indication: CHRONIC HEPATITIS C
     Dosage: DIVIDED DOSES DAILY (TOTAL DAILY DOSE: 1200 MG)
     Route: 048
     Dates: start: 20150428, end: 20150922
  2. ZOLPIDEM [Concomitant]
     Active Substance: ZOLPIDEM\ZOLPIDEM TARTRATE
     Indication: INSOMNIA
     Route: 048
     Dates: start: 20150820
  3. OMBITASVIR/PARITAPREVIR/RITONAVIR [Suspect]
     Active Substance: OMBITASVIR\PARITAPREVIR\RITONAVIR
     Indication: CHRONIC HEPATITIS C
     Dosage: 150/100/25 MG IN 1D
     Route: 048
     Dates: start: 20150428
  4. PARACETAMOL [Concomitant]
     Active Substance: ACETAMINOPHEN
     Indication: PAIN PROPHYLAXIS
     Route: 048
     Dates: start: 20150528
  5. PARACETAMOL [Concomitant]
     Active Substance: ACETAMINOPHEN
     Indication: INSOMNIA
  6. DASABUVIR [Suspect]
     Active Substance: DASABUVIR
     Indication: CHRONIC HEPATITIS C
     Route: 048
     Dates: start: 20150428
  7. ZOPICLONE [Concomitant]
     Active Substance: ZOPICLONE
     Indication: INSOMNIA
     Route: 048
     Dates: start: 20150428, end: 20150819
  8. BECLAZONE [Concomitant]
     Indication: COUGH
     Route: 055
     Dates: start: 20150730
  9. SALAMOL [Concomitant]
     Active Substance: ALBUTEROL
     Indication: COUGH
     Route: 055
     Dates: start: 20150730

REACTIONS (1)
  - Eczema [Not Recovered/Not Resolved]

NARRATIVE: CASE EVENT DATE: 20150914
